FAERS Safety Report 18103297 (Version 1)
Quarter: 2020Q3

REPORT INFORMATION
  Report Type: Spontaneous
  Country: US (occurrence: US)
  Receive Date: 20200803
  Receipt Date: 20200803
  Transmission Date: 20201103
  Serious: No
  Sender: FDA-Public Use
  Company Number: US-PFIZER INC-2020289684

PATIENT
  Sex: Male
  Weight: 95.25 kg

DRUGS (1)
  1. GABAPENTIN. [Suspect]
     Active Substance: GABAPENTIN
     Indication: NEURALGIA
     Dosage: 600 MG, THREE TIMES A DAY

REACTIONS (3)
  - Neuralgia [Unknown]
  - Drug ineffective [Unknown]
  - Condition aggravated [Unknown]
